FAERS Safety Report 8073899-8 (Version None)
Quarter: 2011Q4

REPORT INFORMATION
  Report Type: 
  Country: None (occurrence: None)
  Receive Date: 20111221
  Receipt Date: 20110127
  Transmission Date: 20120403
  Serious: Yes (Other)
  Sender: FDA-Public Use
  Company Number: PHHY2010US22886

PATIENT
  Age: 61 Year
  Sex: Male

DRUGS (6)
  1. EXJADE [Suspect]
     Indication: BLOOD PRESSURE
     Dosage: 1500 MG, QD, ORAL, 500 MG, QID, ORAL, 500 MG, TID, ORAL, 2000 MG, DAILY, ORAL
     Route: 048
  2. SINEMET [Suspect]
  3. CARBIDOPA (CARBIDOPA) [Suspect]
  4. TRIHEXYPHENIDYL HCL [Suspect]
  5. ATENOLOL [Suspect]
     Indication: BLOOD PRESSURE
  6. ANTIBIOTICS [Concomitant]

REACTIONS (14)
  - HEART RATE INCREASED [None]
  - PHARYNGITIS [None]
  - HEPATIC ENZYME INCREASED [None]
  - GASTROOESOPHAGEAL REFLUX DISEASE [None]
  - DIARRHOEA [None]
  - DYSPNOEA [None]
  - FATIGUE [None]
  - CANDIDIASIS [None]
  - LIVER FUNCTION TEST ABNORMAL [None]
  - CHEST DISCOMFORT [None]
  - DRY MOUTH [None]
  - LIP SWELLING [None]
  - SWOLLEN TONGUE [None]
  - RENAL DISORDER [None]
